FAERS Safety Report 15544402 (Version 1)
Quarter: 2018Q4

REPORT INFORMATION
  Report Type: Report from Study
  Country: US (occurrence: US)
  Receive Date: 20181024
  Receipt Date: 20181024
  Transmission Date: 20190205
  Serious: Yes (Other)
  Sender: FDA-Public Use
  Company Number: US-ROCHE-2198875

PATIENT
  Sex: Male
  Weight: 77.18 kg

DRUGS (2)
  1. RITUXAN [Suspect]
     Active Substance: RITUXIMAB
     Indication: PROGRESSIVE MULTIPLE SCLEROSIS
     Dosage: STARTED 5 TO 6 YEARS AGO ONLY 2 DOSES ;
     Route: 042
  2. OCREVUS [Concomitant]
     Active Substance: OCRELIZUMAB
     Indication: PROGRESSIVE MULTIPLE SCLEROSIS
     Route: 042
     Dates: start: 20180813

REACTIONS (4)
  - Intentional product use issue [Unknown]
  - Multiple sclerosis [Unknown]
  - Hemiparesis [Unknown]
  - Off label use [Unknown]
